FAERS Safety Report 23844561 (Version 1)
Quarter: 2024Q2

REPORT INFORMATION
  Report Type: Spontaneous
  Country: CN (occurrence: None)
  Receive Date: 20240510
  Receipt Date: 20240510
  Transmission Date: 20240716
  Serious: Yes (Other)
  Sender: FDA-Public Use
  Company Number: CN-ROCHE-3558747

PATIENT
  Age: 52 Year
  Sex: Female

DRUGS (5)
  1. GAZYVA [Suspect]
     Active Substance: OBINUTUZUMAB
     Indication: Chronic lymphocytic leukaemia stage 4
     Dosage: OBINUTUZUM 30-MAR-2023, 18-APR-2023, 24-APR-2023
     Route: 042
     Dates: start: 20230330
  2. ZANUBRUTINIB [Concomitant]
     Active Substance: ZANUBRUTINIB
     Indication: Chronic lymphocytic leukaemia stage 4
     Route: 048
     Dates: start: 20230330
  3. ZANUBRUTINIB [Concomitant]
     Active Substance: ZANUBRUTINIB
     Dosage: ZANUBRUTINIB 160MG BID +VENETOCLAX 20MG QD,VENETOCLAX GRADUALLY INCREASED TO 300?MG QD FOR MAINTENAN
     Dates: start: 20230513
  4. VENETOCLAX [Concomitant]
     Active Substance: VENETOCLAX
     Indication: Chronic lymphocytic leukaemia stage 4
     Dosage: ZANUBRUTINIB 160MG BID +VENETOCLAX 20MG QD,VENETOCLAX GRADUALLY INCREASED TO 300?MG QD FOR MAINTENAN
     Dates: start: 20230513
  5. VENETOCLAX [Concomitant]
     Active Substance: VENETOCLAX
     Dates: start: 20230531

REACTIONS (5)
  - Tumour lysis syndrome [Unknown]
  - Pneumonia [Unknown]
  - Urinary tract infection [Unknown]
  - Erysipelas [Unknown]
  - Off label use [Unknown]
